FAERS Safety Report 26185762 (Version 1)
Quarter: 2025Q4

REPORT INFORMATION
  Report Type: Spontaneous
  Country: US (occurrence: US)
  Receive Date: 20251222
  Receipt Date: 20251222
  Transmission Date: 20260118
  Serious: No
  Sender: ROCHE
  Company Number: US-ROCHE-10000463485

PATIENT

DRUGS (1)
  1. MYCOPHENOLIC ACID [Suspect]
     Active Substance: MYCOPHENOLIC ACID
     Indication: Lupus nephritis

REACTIONS (7)
  - Muscle twitching [Unknown]
  - Muscle spasms [Unknown]
  - Dyspnoea [Unknown]
  - Insomnia [Unknown]
  - Decreased appetite [Unknown]
  - Night sweats [Unknown]
  - Fatigue [Unknown]
